FAERS Safety Report 22034544 (Version 2)
Quarter: 2023Q1

REPORT INFORMATION
  Report Type: Spontaneous
  Country: US (occurrence: US)
  Receive Date: 20230224
  Receipt Date: 20230313
  Transmission Date: 20230417
  Serious: No
  Sender: FDA-Public Use
  Company Number: US-SUNOVION-2023SUN000315AA

PATIENT
  Sex: Male

DRUGS (3)
  1. LATUDA [Suspect]
     Active Substance: LURASIDONE HYDROCHLORIDE
     Indication: Depression
     Dosage: UNK
     Route: 048
  2. LATUDA [Suspect]
     Active Substance: LURASIDONE HYDROCHLORIDE
     Indication: Bipolar II disorder
  3. LITHIUM [Suspect]
     Active Substance: LITHIUM
     Dosage: UNK
     Route: 065

REACTIONS (4)
  - Depression [Unknown]
  - Off label use [Unknown]
  - Therapy interrupted [Unknown]
  - Drug effective for unapproved indication [Unknown]
